FAERS Safety Report 6369388-9 (Version None)
Quarter: 2009Q3

REPORT INFORMATION
  Report Type: 
  Country: None (occurrence: None)
  Receive Date: 20090917
  Receipt Date: 20090903
  Transmission Date: 20100115
  Serious: Yes (Life-Threatening, Hospitalization)
  Sender: FDA-Public Use
  Company Number: AE-2008-064

PATIENT
  Age: 77 Year
  Sex: Female
  Weight: 95 kg

DRUGS (11)
  1. METOPROLOL [Suspect]
     Indication: HYPERTENSION
     Dosage: 100MG, BID, ORAL
     Route: 048
  2. METFORMIN HCL [Suspect]
     Indication: TYPE 2 DIABETES MELLITUS
     Dosage: 500MG, BID, ORAL
     Route: 048
     Dates: start: 19990101
  3. FUROSEMIDE [Suspect]
     Indication: RENAL IMPAIRMENT
     Dosage: QD, ORAL
     Route: 048
     Dates: start: 20020101, end: 20080808
  4. LISINOPRIL [Suspect]
     Indication: HYPERTENSION
     Dosage: QD, ORAL
     Route: 048
     Dates: start: 20030101, end: 20080727
  5. GLIBENCLAMIDE: 1.75MG TABLET [Suspect]
     Indication: TYPE 2 DIABETES MELLITUS
     Dosage: QD, ORAL
     Route: 048
     Dates: start: 20000101, end: 20080727
  6. ACETYLSALICYLIC ACID [Concomitant]
  7. PANTOPRAZOLE SODIUM [Concomitant]
  8. SIMVASTATIN [Concomitant]
  9. XIPAMIDE [Concomitant]
  10. *IMIPENEM [Concomitant]
  11. CITALOPRAM HYDROBROMIDE [Concomitant]

REACTIONS (2)
  - HYPOGLYCAEMIA [None]
  - RENAL FAILURE ACUTE [None]
